FAERS Safety Report 4515334-X (Version None)
Quarter: 2004Q4

REPORT INFORMATION
  Report Type: 
  Country: None (occurrence: None)
  Receive Date: 20041126
  Receipt Date: 20041116
  Transmission Date: 20050328
  Serious: Yes (Hospitalization)
  Sender: FDA-Public Use
  Company Number: HQWYE561319NOV04

PATIENT
  Age: 77 Year
  Sex: Male
  Weight: 93.8 kg

DRUGS (1)
  1. MYLOTARG [Suspect]
     Indication: ACUTE MYELOID LEUKAEMIA
     Dosage: 19 MG, INTRAVENOUS
     Route: 042
     Dates: start: 20040519, end: 20040519

REACTIONS (2)
  - ATRIAL FIBRILLATION [None]
  - THROMBOCYTOPENIA [None]
